FAERS Safety Report 7800485-4 (Version None)
Quarter: 2011Q4

REPORT INFORMATION
  Report Type: 
  Country: None (occurrence: None)
  Receive Date: 20111006
  Receipt Date: 20110928
  Transmission Date: 20120403
  Serious: No
  Sender: FDA-Public Use
  Company Number: US-BAYER-2011-046674

PATIENT
  Age: 48 Year
  Sex: Female

DRUGS (1)
  1. MIRENA [Suspect]
     Indication: CONTRACEPTION
     Dosage: 20 MCG/24HR, CONT
     Route: 015
     Dates: start: 20101209, end: 20110406

REACTIONS (4)
  - VAGINAL HAEMORRHAGE [None]
  - DISCOMFORT [None]
  - ABDOMINAL PAIN [None]
  - MENORRHAGIA [None]
